FAERS Safety Report 4922203-X (Version None)
Quarter: 2006Q1

REPORT INFORMATION
  Report Type: 
  Country: None (occurrence: None)
  Receive Date: 20060224
  Receipt Date: 20050310
  Transmission Date: 20060701
  Serious: Yes (Hospitalization, Disabling)
  Sender: FDA-Public Use
  Company Number: US-MERCK-0503USA02351

PATIENT
  Age: 55 Year
  Sex: Female
  Weight: 64 kg

DRUGS (9)
  1. VIOXX [Suspect]
     Indication: SPINAL DISORDER
     Route: 048
     Dates: start: 20010101, end: 20030303
  2. PREMARIN [Concomitant]
     Indication: HOT FLUSH
     Route: 065
     Dates: start: 19760101
  3. TYLENOL (CAPLET) [Concomitant]
     Route: 065
     Dates: start: 19730101
  4. CELEBREX [Concomitant]
     Route: 065
     Dates: start: 20020101, end: 20020416
  5. DILANTIN [Suspect]
     Route: 065
     Dates: start: 20030301, end: 20040204
  6. DILANTIN [Suspect]
     Route: 065
     Dates: start: 20040205, end: 20040205
  7. LORTAB [Concomitant]
     Route: 065
  8. NEURONTIN [Concomitant]
     Route: 065
  9. PREVACID [Concomitant]
     Route: 065

REACTIONS (39)
  - ARRHYTHMIA [None]
  - CARDIAC DISORDER [None]
  - CERVICOBRACHIAL SYNDROME [None]
  - CHEST PAIN [None]
  - CHRONIC OBSTRUCTIVE PULMONARY DISEASE [None]
  - CONSTIPATION [None]
  - CONVULSION [None]
  - DEPRESSION [None]
  - FALL [None]
  - FATIGUE [None]
  - FEELING ABNORMAL [None]
  - GASTRIC ULCER [None]
  - GASTROINTESTINAL DISORDER [None]
  - HEADACHE [None]
  - HEPATIC ENZYME INCREASED [None]
  - HIATUS HERNIA [None]
  - HYPERKALAEMIA [None]
  - HYPERLIPIDAEMIA [None]
  - HYPOPERFUSION [None]
  - HYPOVOLAEMIA [None]
  - INTENTIONAL OVERDOSE [None]
  - ISCHAEMIC STROKE [None]
  - LIMB INJURY [None]
  - MENTAL STATUS CHANGES [None]
  - NAUSEA [None]
  - NERVE INJURY [None]
  - OESOPHAGEAL DISORDER [None]
  - PAIN [None]
  - PRURITUS [None]
  - RENAL DISORDER [None]
  - ROTATOR CUFF SYNDROME [None]
  - SLEEP APNOEA SYNDROME [None]
  - SPINAL COLUMN STENOSIS [None]
  - SUICIDE ATTEMPT [None]
  - TRANSIENT ISCHAEMIC ATTACK [None]
  - TREMOR [None]
  - URINARY TRACT INFECTION [None]
  - VENTRICULAR DYSFUNCTION [None]
  - VOMITING [None]
